FAERS Safety Report 23649520 (Version 2)
Quarter: 2024Q2

REPORT INFORMATION
  Report Type: Spontaneous
  Country: US (occurrence: US)
  Receive Date: 20240319
  Receipt Date: 20240513
  Transmission Date: 20240716
  Serious: Yes (Hospitalization)
  Sender: FDA-Public Use
  Company Number: US-PFIZER INC-202400064739

PATIENT
  Age: 65 Year
  Sex: Female
  Weight: 90.703 kg

DRUGS (3)
  1. PAXLOVID [Suspect]
     Active Substance: NIRMATRELVIR\RITONAVIR
     Indication: COVID-19 treatment
     Dosage: THREE TABLETS IN THE MORNING AND A NIGHT FOR 5 DAYS TAKE MILK, JUICE OR WATER/ 150 MG, 100 MG
     Dates: start: 20240312, end: 20240316
  2. RANEXA [Concomitant]
     Active Substance: RANOLAZINE
     Indication: Heart rate
     Dosage: 500 MG, 2X/DAY WITH WATER OR MILK
     Dates: start: 201910, end: 20240312
  3. RANEXA [Concomitant]
     Active Substance: RANOLAZINE
     Indication: Myocardial infarction
     Dosage: UNK

REACTIONS (7)
  - Drug hypersensitivity [Not Recovered/Not Resolved]
  - Dysphonia [Not Recovered/Not Resolved]
  - Aphonia [Not Recovered/Not Resolved]
  - Dysgeusia [Not Recovered/Not Resolved]
  - Nausea [Not Recovered/Not Resolved]
  - Ageusia [Unknown]
  - Eating disorder [Unknown]

NARRATIVE: CASE EVENT DATE: 20240101
